FAERS Safety Report 9294251 (Version 1)
Quarter: 2013Q2

REPORT INFORMATION
  Report Type: Spontaneous
  Country: CA (occurrence: CA)
  Receive Date: 20130516
  Receipt Date: 20130516
  Transmission Date: 20140414
  Serious: Yes (Other)
  Sender: FDA-Public Use
  Company Number: CA-ALEXION-A201301046

PATIENT
  Age: 24 Year
  Sex: Male
  Weight: 95.25 kg

DRUGS (18)
  1. SOLIRIS 300MG [Suspect]
     Indication: PAROXYSMAL NOCTURNAL HAEMOGLOBINURIA
     Dosage: 600 MG, QW
     Route: 042
     Dates: start: 20130408
  2. FLUCONAZOLE [Concomitant]
     Indication: PROPHYLAXIS
     Dosage: 400 MG, QD
     Route: 042
     Dates: start: 20130408, end: 20130411
  3. TAZOCIN [Concomitant]
     Indication: PROPHYLAXIS
     Dosage: 4.5 G, QID
     Route: 042
     Dates: start: 20130408, end: 20130411
  4. DAPTOMYCIN [Concomitant]
     Indication: INFECTION
     Dosage: 100 MG, QD
     Route: 042
     Dates: start: 20130403, end: 20130416
  5. VORICONAZOLE [Concomitant]
     Indication: FUNGAL INFECTION
     Dosage: 580 MG, BID
     Dates: start: 20130415, end: 20130416
  6. VORICONAZOLE [Concomitant]
     Dosage: 380 MG, BID
     Route: 042
     Dates: start: 20130416
  7. ELECTROLYTE SOLUTIONS [Concomitant]
     Indication: MEDICAL DIET
     Dosage: 1079 ML, UNK
     Route: 051
     Dates: start: 20130406, end: 20130414
  8. MEROPENEM [Concomitant]
     Indication: ANTIBIOTIC THERAPY
     Dosage: 1000 MG, TID
     Route: 042
     Dates: start: 20130416, end: 20130422
  9. HYDROMORPHONE [Concomitant]
     Indication: PAIN
     Dosage: 2 MG, PRN
     Route: 058
     Dates: start: 20130402
  10. HYDROMORPHONE [Concomitant]
     Dosage: 2 MG, PRN
     Route: 048
     Dates: start: 20130408
  11. ACETAMINOPHEN [Concomitant]
     Indication: PREMEDICATION
     Dosage: 850 MG, SINGLE
     Route: 048
     Dates: start: 20130410, end: 20130410
  12. ACETAMINOPHEN [Concomitant]
     Indication: PROPHYLAXIS
  13. BENADRYL [Concomitant]
     Indication: PROPHYLAXIS
     Dosage: 50 MG, UNK
     Route: 042
     Dates: start: 20130403
  14. ATIVAN [Concomitant]
     Indication: ANXIOLYTIC THERAPY
     Dosage: 1 MG, HS PRN
     Route: 048
     Dates: start: 20130402
  15. GRAVOL [Concomitant]
     Indication: PROPHYLAXIS
     Dosage: 50 MG, UNK
     Route: 042
     Dates: start: 20130402
  16. SOLUCORTEF [Concomitant]
     Indication: PROPHYLAXIS
     Dosage: 50 MG, UNK
     Route: 042
     Dates: start: 20130403
  17. INSULIN HUMAN R [Concomitant]
     Indication: HYPERGLYCAEMIA
     Dosage: SLIDING SCALE, QID
     Route: 058
     Dates: start: 20120313
  18. CEFEPIME [Concomitant]
     Indication: SEPTIC SHOCK
     Dosage: 2 G, TID
     Route: 042
     Dates: start: 20130414, end: 20130416

REACTIONS (1)
  - Transfusion [Recovered/Resolved]
